FAERS Safety Report 10156733 (Version 2)
Quarter: 2014Q2

REPORT INFORMATION
  Report Type: Spontaneous
  Country: CA (occurrence: None)
  Receive Date: 20140505
  Receipt Date: 20140529
  Transmission Date: 20141212
  Serious: Yes (Death, Hospitalization)
  Sender: FDA-Public Use
  Company Number: CA-015490

PATIENT
  Age: 89 Year
  Sex: Male

DRUGS (11)
  1. FIRMAGON [Suspect]
     Indication: PROSTATE CANCER
     Dosage: 1X/MONTH
     Route: 058
     Dates: start: 20130410, end: 20140425
  2. METFORMIN [Concomitant]
  3. GLUCOZIDE [Concomitant]
  4. HYDROCHLOROTHIAZIDE [Concomitant]
  5. CANDESARTAN [Concomitant]
  6. LIPITOR [Concomitant]
  7. BISOPROLOL [Concomitant]
  8. TAMSULOSIN [Concomitant]
  9. ACCUPRIL [Concomitant]
  10. LASIX /00032601/ [Concomitant]
  11. CITALOPRAM [Concomitant]

REACTIONS (4)
  - Urosepsis [None]
  - Cardiac failure congestive [None]
  - Dyspnoea [None]
  - Incoherent [None]
